FAERS Safety Report 6587818-4 (Version None)
Quarter: 2010Q1

REPORT INFORMATION
  Report Type: 
  Country: None (occurrence: None)
  Receive Date: 20100218
  Receipt Date: 20100210
  Transmission Date: 20100710
  Serious: Yes (Other)
  Sender: FDA-Public Use
  Company Number: PHHY2010FR07911

PATIENT
  Age: 50 Year
  Sex: Male

DRUGS (1)
  1. EUCREAS [Suspect]
     Dosage: 1000/50 MG

REACTIONS (1)
  - ANGIOEDEMA [None]
